FAERS Safety Report 4366116-3 (Version None)
Quarter: 2004Q2

REPORT INFORMATION
  Report Type: 
  Country: None (occurrence: None)
  Receive Date: 20040524
  Receipt Date: 20040506
  Transmission Date: 20050107
  Serious: Yes (Hospitalization)
  Sender: FDA-Public Use
  Company Number: 206633

PATIENT
  Age: 52 Year
  Sex: Female
  Weight: 74 kg

DRUGS (3)
  1. HERCEPTIN [Suspect]
     Indication: BREAST CANCER
     Dosage: 146 UNIT, 1/WEEK, INTRAVENOUS
     Route: 042
     Dates: start: 20030721, end: 20031002
  2. TAXOL [Suspect]
     Indication: BREAST CANCER
     Dosage: 145 UNIT, 1/WEEK, INTRAVENOUS
     Route: 042
     Dates: start: 20030721, end: 20031002
  3. DOXORUBICIN HYDROCHLORIDE [Suspect]
     Indication: BREAST CANCER
     Dosage: 90 UNIT, Q3W, INTRAVENOUS
     Route: 042
     Dates: start: 20030721, end: 20030925

REACTIONS (1)
  - FEBRILE NEUTROPENIA [None]
